FAERS Safety Report 14928473 (Version 1)
Quarter: 2018Q2

REPORT INFORMATION
  Report Type: Spontaneous
  Country: PT (occurrence: PT)
  Receive Date: 20180523
  Receipt Date: 20180523
  Transmission Date: 20180711
  Serious: Yes (Disabling)
  Sender: FDA-Public Use
  Company Number: PT-GLAXOSMITHKLINE-PT2018086951

PATIENT
  Age: 49 Year
  Sex: Male
  Weight: 89 kg

DRUGS (4)
  1. VALACICLOVIR [Suspect]
     Active Substance: VALACYCLOVIR HYDROCHLORIDE
     Indication: ROSACEA
     Dosage: 1000 MG, UNK
     Route: 048
     Dates: start: 20180502, end: 20180503
  2. GLUCOSAMINE [Concomitant]
     Active Substance: GLUCOSAMINE
     Indication: OSTEOARTHRITIS
     Dosage: 1 DF, UNK
     Route: 048
  3. DOXICICLINA [Suspect]
     Active Substance: DOXYCYCLINE
     Indication: ROSACEA
     Dosage: 100 MG, QD
     Route: 048
     Dates: start: 20180502, end: 20180503
  4. METRONIDAZOL [Concomitant]
     Active Substance: METRONIDAZOLE
     Indication: ROSACEA
     Dosage: 1 DF, QD
     Route: 003

REACTIONS (3)
  - Abdominal pain [Recovering/Resolving]
  - Diarrhoea [Recovering/Resolving]
  - Feeling hot [Recovering/Resolving]

NARRATIVE: CASE EVENT DATE: 20180502
